FAERS Safety Report 8534430-3 (Version None)
Quarter: 2012Q3

REPORT INFORMATION
  Report Type: 
  Country: None (occurrence: None)
  Receive Date: 20120724
  Receipt Date: 20120719
  Transmission Date: 20120928
  Serious: Yes (Other)
  Sender: FDA-Public Use
  Company Number: PHHY2012BR054455

PATIENT
  Age: 66 Year
  Sex: Male

DRUGS (6)
  1. AMLODOPINE BESYLATE AND VALSARTAN [Suspect]
     Indication: HYPERTENSION
     Dosage: 1 DF (160/10 MG), Q12H
     Route: 048
     Dates: start: 20120606, end: 20120601
  2. DIAMICRON [Concomitant]
     Indication: DIABETES MELLITUS
     Dosage: 3 DF, QD
     Route: 048
  3. INDAPAMIDE [Concomitant]
     Indication: CARDIAC DISORDER
     Dosage: 1 G, DAILY
     Route: 048
  4. GABANUERIN [Concomitant]
     Indication: CARDIOVASCULAR DISORDER
     Dosage: 2 DF, DAILY
     Route: 048
  5. METFORMIN HCL [Concomitant]
     Indication: DIABETES MELLITUS
     Dosage: 2 DF, QD
     Route: 048
  6. OMEPRAZOLE [Concomitant]
     Indication: GASTRIC DISORDER
     Dosage: 20 MG, DAILY
     Route: 048

REACTIONS (1)
  - OEDEMA PERIPHERAL [None]
